FAERS Safety Report 7733205 (Version 2)
Quarter: 2013Q2

REPORT INFORMATION
  Report Type: Spontaneous
  Country: US (occurrence: US)
  Receive Date: 20101223
  Receipt Date: 20130617
  Transmission Date: 20140414
  Serious: Yes (Other)
  Sender: FDA-Public Use
  Company Number: US-JNJFOC-20100807398

PATIENT
  Age: 52 Year
  Sex: Female
  Weight: 98.43 kg

DRUGS (1)
  1. LEVAQUIN [Suspect]
     Indication: PNEUMONIA
     Route: 048
     Dates: start: 20080401, end: 20080531

REACTIONS (7)
  - Immobile [Unknown]
  - Tendon rupture [Unknown]
  - Tendon rupture [Unknown]
  - Swelling [Unknown]
  - Fear [Unknown]
  - Pain [Unknown]
  - Anxiety [Unknown]
